FAERS Safety Report 17682037 (Version 1)
Quarter: 2020Q2

REPORT INFORMATION
  Report Type: Spontaneous
  Country: LB (occurrence: LB)
  Receive Date: 20200418
  Receipt Date: 20200418
  Transmission Date: 20200714
  Serious: Yes (Other)
  Sender: FDA-Public Use
  Company Number: LB-AMGEN-LBNSP2020062430

PATIENT
  Age: 30 Year
  Sex: Male

DRUGS (2)
  1. IVABRADINE [Suspect]
     Active Substance: IVABRADINE
     Dosage: 7.5 MILLIGRAM, BID
     Route: 048
  2. IVABRADINE [Suspect]
     Active Substance: IVABRADINE
     Indication: VENTRICULAR EXTRASYSTOLES
     Dosage: 5 MILLIGRAM, BID
     Route: 048

REACTIONS (2)
  - Ventricular extrasystoles [Unknown]
  - Off label use [Unknown]

NARRATIVE: CASE EVENT DATE: 2020
